FAERS Safety Report 10619061 (Version 1)
Quarter: 2014Q4

REPORT INFORMATION
  Report Type: Spontaneous
  Country: US (occurrence: None)
  Receive Date: 20141126
  Receipt Date: 20141126
  Transmission Date: 20150529
  Serious: Yes (Other)
  Sender: FDA-Public Use
  Company Number: 2631161

PATIENT
  Age: 12 Year
  Sex: Male
  Weight: 42 kg

DRUGS (2)
  1. SODIUM CHLORIDE. [Suspect]
     Active Substance: SODIUM CHLORIDE
     Indication: FLUID REPLACEMENT
     Dosage: NOT REPORTED
     Dates: start: 20141111, end: 20141111
  2. OTHER THERAPEUTIC PRODUCTS [Suspect]
     Active Substance: UNSPECIFIED INGREDIENT
     Indication: DRUG THERAPY
     Dosage: 1 SPRAY, ONCE, UNKNOWN,
     Route: 061
     Dates: start: 20141111, end: 20141111

REACTIONS (2)
  - Anaphylactic reaction [None]
  - Product quality issue [None]

NARRATIVE: CASE EVENT DATE: 20141111
